FAERS Safety Report 9742620 (Version 1)
Quarter: 2013Q4

REPORT INFORMATION
  Report Type: Spontaneous
  Country: US (occurrence: US)
  Receive Date: 20131210
  Receipt Date: 20131210
  Transmission Date: 20140711
  Serious: No
  Sender: FDA-Public Use
  Company Number: US-GILEAD-2009-0024761

PATIENT
  Sex: Female

DRUGS (15)
  1. LETAIRIS [Suspect]
     Indication: PULMONARY ARTERIAL HYPERTENSION
     Route: 048
     Dates: start: 20090619
  2. AMBIEN [Concomitant]
  3. LESCOL [Concomitant]
  4. SYNTHROID [Concomitant]
  5. WARFARIN [Concomitant]
  6. ATACAND [Concomitant]
  7. AMIODARONE [Concomitant]
  8. NORVASC [Concomitant]
  9. PREVACID [Concomitant]
  10. SINGULAIR [Concomitant]
  11. AMLODIPINE [Concomitant]
  12. AMIODARONE [Concomitant]
  13. SYNTHROID [Concomitant]
  14. ZOLPIDEM TARTRATE [Concomitant]
  15. ARIMIDEX [Concomitant]

REACTIONS (1)
  - Anaemia [Recovering/Resolving]
